FAERS Safety Report 13457419 (Version 1)
Quarter: 2017Q2

REPORT INFORMATION
  Report Type: Spontaneous
  Country: GB (occurrence: GB)
  Receive Date: 20170419
  Receipt Date: 20170419
  Transmission Date: 20170830
  Serious: Yes (Hospitalization)
  Sender: FDA-Public Use
  Company Number: GB-IMPAX LABORATORIES, INC-2017-IPXL-00955

PATIENT
  Sex: Male

DRUGS (3)
  1. MORPHINE SULFATE EXTENDED-RELEASE [Suspect]
     Active Substance: MORPHINE SULFATE
     Indication: POSTOPERATIVE ANALGESIA
     Dosage: 6 HOURLY MORPHINE SOLUTION WITH EXTRA MORPHINE AS REQUIRED, UNK
     Route: 048
  2. MORPHINE SULFATE EXTENDED-RELEASE [Suspect]
     Active Substance: MORPHINE SULFATE
     Indication: CHEST PAIN
     Dosage: UNK
     Route: 042
  3. PARACETAMOL [Concomitant]
     Active Substance: ACETAMINOPHEN
     Indication: POSTOPERATIVE ANALGESIA
     Dosage: UNK
     Route: 065

REACTIONS (2)
  - Myoclonus [Recovered/Resolved]
  - Hyperaesthesia [Recovered/Resolved]
